FAERS Safety Report 22371581 (Version 1)
Quarter: 2023Q2

REPORT INFORMATION
  Report Type: Spontaneous
  Country: TR (occurrence: TR)
  Receive Date: 20230526
  Receipt Date: 20230526
  Transmission Date: 20230722
  Serious: Yes (Other)
  Sender: FDA-Public Use
  Company Number: TR-GLAXOSMITHKLINE-TR2023EME074210

PATIENT

DRUGS (1)
  1. ALBUTEROL SULFATE [Suspect]
     Active Substance: ALBUTEROL SULFATE
     Indication: Asthma
     Dosage: UNK, 200DOZ INHALER NON-CFC

REACTIONS (6)
  - Brain hypoxia [Unknown]
  - Dyspnoea [Unknown]
  - Musculoskeletal stiffness [Unknown]
  - Eye movement disorder [Unknown]
  - Fall [Unknown]
  - Prescription drug used without a prescription [Unknown]
